FAERS Safety Report 7350874-X (Version None)
Quarter: 2011Q1

REPORT INFORMATION
  Report Type: 
  Country: None (occurrence: None)
  Receive Date: 20110314
  Receipt Date: 20110309
  Transmission Date: 20110831
  Serious: Yes (Other)
  Sender: FDA-Public Use
  Company Number: US-PFIZER INC-2010104235

PATIENT
  Sex: Female
  Weight: 104.31 kg

DRUGS (5)
  1. FOLIC ACID [Concomitant]
     Dosage: UNK
  2. SOMA [Concomitant]
     Dosage: UNK
  3. LYRICA [Suspect]
     Indication: FIBROMYALGIA
     Dosage: 50 MG, 1X/DAY
     Route: 048
  4. XANAX [Concomitant]
     Dosage: UNK
  5. LYRICA [Suspect]
     Indication: ARTHRITIS
     Dosage: 100 MG, 3X/DAY

REACTIONS (3)
  - WEIGHT INCREASED [None]
  - OEDEMA PERIPHERAL [None]
  - DISCOMFORT [None]
